FAERS Safety Report 7338165-4 (Version None)
Quarter: 2011Q1

REPORT INFORMATION
  Report Type: 
  Country: None (occurrence: None)
  Receive Date: 20110308
  Receipt Date: 20110223
  Transmission Date: 20110831
  Serious: Yes (Hospitalization)
  Sender: FDA-Public Use
  Company Number: FR-ELI_LILLY_AND_COMPANY-FR201103000201

PATIENT
  Sex: Female

DRUGS (5)
  1. DAFALGAN [Concomitant]
     Dosage: UNK, AS NEEDED
  2. CYMBALTA [Suspect]
     Indication: BIPOLAR DISORDER
     Dosage: 60 MG, DAILY (1/D)
     Route: 048
     Dates: start: 20080701
  3. MEPRONIZINE [Concomitant]
     Route: 048
  4. DEPAMIDE [Concomitant]
     Dosage: 300 MG, EVERY 8 HRS
     Route: 048
  5. TERCIAN [Concomitant]
     Route: 048

REACTIONS (6)
  - OFF LABEL USE [None]
  - HYPONATRAEMIA [None]
  - INJURY [None]
  - FACE INJURY [None]
  - FALL [None]
  - HYPERTENSION [None]
